FAERS Safety Report 7880821 (Version 4)
Quarter: 2014Q3

REPORT INFORMATION
  Report Type: Report from Study
  Country: US (occurrence: US)
  Receive Date: 20110401
  Receipt Date: 20140731
  Transmission Date: 20150326
  Serious: Yes (Hospitalization)
  Sender: FDA-Public Use
  Company Number: US-BIOGENIDEC-2011BI011041

PATIENT
  Age: 60 Year
  Sex: Female

DRUGS (1)
  1. AVONEX [Suspect]
     Active Substance: INTERFERON BETA-1A
     Indication: MULTIPLE SCLEROSIS
     Route: 030
     Dates: start: 20020520

REACTIONS (5)
  - Post procedural infection [Recovered/Resolved]
  - Bladder neoplasm [Unknown]
  - Bladder cancer [Recovered/Resolved]
  - Goitre [Not Recovered/Not Resolved]
  - Endotracheal intubation complication [Unknown]

NARRATIVE: CASE EVENT DATE: 20110318
